FAERS Safety Report 5122576-1 (Version None)
Quarter: 2006Q4

REPORT INFORMATION
  Report Type: 
  Country: None (occurrence: None)
  Receive Date: 20061009
  Receipt Date: 20060310
  Transmission Date: 20070319
  Serious: Yes (Other)
  Sender: FDA-Public Use
  Company Number: PHNR2006AU01353

PATIENT
  Age: 64 Year
  Sex: Female

DRUGS (12)
  1. PAMIDRONATE DISODIUM [Suspect]
     Indication: BREAST CANCER METASTATIC
     Dosage: 90 MG, QMO
     Dates: start: 20010101
  2. FOSAMAX [Concomitant]
  3. VENLAFAXIINE HCL [Concomitant]
  4. INSULIN [Concomitant]
  5. RANITIDINE [Concomitant]
  6. OXYCONTIN [Concomitant]
  7. GABAPENTIN [Concomitant]
  8. DIGOXIN [Concomitant]
  9. CALTRATE [Concomitant]
  10. ACETAMINOPHEN [Concomitant]
  11. TEMAZEPAM [Concomitant]
  12. WARFARIN SODIUM [Concomitant]

REACTIONS (9)
  - BREATH ODOUR [None]
  - DECREASED APPETITE [None]
  - DENTAL CARIES [None]
  - DEPRESSED MOOD [None]
  - IMPAIRED HEALING [None]
  - MOUTH ULCERATION [None]
  - ORAL PAIN [None]
  - OROANTRAL FISTULA [None]
  - OSTEONECROSIS [None]
